FAERS Safety Report 20763221 (Version 2)
Quarter: 2022Q2

REPORT INFORMATION
  Report Type: Spontaneous
  Country: US (occurrence: US)
  Receive Date: 20220428
  Receipt Date: 20220505
  Transmission Date: 20220721
  Serious: Yes (Other)
  Sender: FDA-Public Use
  Company Number: US-PFIZER INC-202200635242

PATIENT
  Age: 68 Year

DRUGS (1)
  1. XELJANZ [Suspect]
     Active Substance: TOFACITINIB CITRATE
     Dosage: UNK

REACTIONS (6)
  - Blindness [Unknown]
  - Diabetes mellitus [Unknown]
  - Vascular graft [Unknown]
  - Cardiac disorder [Unknown]
  - Speech disorder [Unknown]
  - Memory impairment [Unknown]
